FAERS Safety Report 16912110 (Version 1)
Quarter: 2019Q4

REPORT INFORMATION
  Report Type: Spontaneous
  Country: IT (occurrence: IT)
  Receive Date: 20191014
  Receipt Date: 20191014
  Transmission Date: 20200122
  Serious: Yes (Other)
  Sender: FDA-Public Use
  Company Number: IT-UCBSA-2019042428

PATIENT
  Age: 14 Year
  Sex: Female
  Weight: 68 kg

DRUGS (3)
  1. RIVOTRIL [Suspect]
     Active Substance: CLONAZEPAM
     Indication: EPILEPSY
     Dosage: 2.5MG/ML, 18 DROP DAILY
     Route: 048
     Dates: start: 20190101, end: 20190909
  2. KEPPRA [Suspect]
     Active Substance: LEVETIRACETAM
     Indication: EPILEPSY
     Dosage: 8.8 ML DAILY
     Route: 048
     Dates: start: 20190101, end: 20190909
  3. FENOBARBITALE SODICO [Suspect]
     Active Substance: PHENOBARBITAL SODIUM
     Indication: EPILEPSY
     Dosage: 150 MG DAILY
     Route: 048
     Dates: start: 20190101, end: 20190909

REACTIONS (2)
  - Seizure [Recovering/Resolving]
  - Drug ineffective [Unknown]

NARRATIVE: CASE EVENT DATE: 20190909
